FAERS Safety Report 8143507-6 (Version None)
Quarter: 2012Q1

REPORT INFORMATION
  Report Type: 
  Country: None (occurrence: None)
  Receive Date: 20120217
  Receipt Date: 20120209
  Transmission Date: 20120608
  Serious: Yes (Other)
  Sender: FDA-Public Use
  Company Number: US-BRISTOL-MYERS SQUIBB COMPANY-16392003

PATIENT
  Age: 69 Year
  Sex: Male
  Weight: 180 kg

DRUGS (5)
  1. AVODART [Concomitant]
  2. REVATIO [Suspect]
     Indication: PULMONARY HYPERTENSION
     Dosage: TABS
     Route: 048
     Dates: start: 20080101
  3. POTASSIUM CHLORIDE [Concomitant]
  4. LASIX [Concomitant]
  5. COUMADIN [Suspect]

REACTIONS (2)
  - INTERNATIONAL NORMALISED RATIO INCREASED [None]
  - PNEUMONIA [None]
